FAERS Safety Report 7245488-6 (Version None)
Quarter: 2011Q1

REPORT INFORMATION
  Report Type: 
  Country: None (occurrence: None)
  Receive Date: 20110118
  Receipt Date: 20110103
  Transmission Date: 20110831
  Serious: Yes (Other)
  Sender: FDA-Public Use
  Company Number: 797589

PATIENT
  Age: 16 Year
  Sex: Male

DRUGS (1)
  1. LEVOPHED [Suspect]
     Indication: HYPOTENSION
     Dosage: 8 MG MILLIGRAM(S), ORAL
     Route: 048
     Dates: start: 20090720

REACTIONS (2)
  - GANGRENE [None]
  - SWELLING [None]
